FAERS Safety Report 25463246 (Version 2)
Quarter: 2025Q3

REPORT INFORMATION
  Report Type: Spontaneous
  Country: EU (occurrence: EU)
  Receive Date: 20250620
  Receipt Date: 20250813
  Transmission Date: 20251021
  Serious: Yes (Other)
  Sender: OTSUKA
  Company Number: EU-MMM-Otsuka-1CV3FEZT

PATIENT
  Age: 42 Year
  Sex: Female

DRUGS (2)
  1. ABILIFY MAINTENA [Suspect]
     Active Substance: ARIPIPRAZOLE
     Indication: Product used for unknown indication
     Route: 065
  2. ABILIFY MAINTENA [Suspect]
     Active Substance: ARIPIPRAZOLE
     Indication: Product used for unknown indication
     Route: 065

REACTIONS (5)
  - Hallucination, auditory [Unknown]
  - Delirium [Unknown]
  - Sleep disorder [Unknown]
  - Anxiety [Unknown]
  - Drug ineffective [Unknown]
